FAERS Safety Report 6756586-5 (Version None)
Quarter: 2010Q2

REPORT INFORMATION
  Report Type: 
  Country: None (occurrence: None)
  Receive Date: 20100604
  Receipt Date: 20100414
  Transmission Date: 20101027
  Serious: Yes (Other)
  Sender: FDA-Public Use
  Company Number: A0855358A

PATIENT
  Age: 66 Year
  Sex: Female

DRUGS (1)
  1. LAMICTAL [Suspect]
     Dosage: 50MG UNKNOWN
     Dates: start: 20100328, end: 20100413

REACTIONS (2)
  - PRURITUS [None]
  - RASH [None]
